FAERS Safety Report 19800000 (Version 1)
Quarter: 2021Q3

REPORT INFORMATION
  Report Type: Spontaneous
  Country: US (occurrence: US)
  Receive Date: 20210907
  Receipt Date: 20210907
  Transmission Date: 20211014
  Serious: Yes (Hospitalization)
  Sender: FDA-Public Use
  Company Number: US-MYLANLABS-2021M1058339

PATIENT
  Age: 69 Year
  Sex: Female
  Weight: 64 kg

DRUGS (2)
  1. GLATIRAMER ACETATE INJECTION [Suspect]
     Active Substance: GLATIRAMER ACETATE
     Indication: MULTIPLE SCLEROSIS
     Dosage: 40 MILLIGRAM, 3XW
     Route: 058
     Dates: start: 202103
  2. WHISPERJECT? AUTOINJECTOR [Suspect]
     Active Substance: DEVICE
     Indication: MULTIPLE SCLEROSIS
     Dosage: UNK

REACTIONS (3)
  - Fall [Unknown]
  - Wrong device used [Not Recovered/Not Resolved]
  - Device issue [Not Recovered/Not Resolved]

NARRATIVE: CASE EVENT DATE: 202103
